FAERS Safety Report 5473713-0 (Version None)
Quarter: 2007Q3

REPORT INFORMATION
  Report Type: 
  Country: None (occurrence: None)
  Receive Date: 20070831
  Receipt Date: 20070607
  Transmission Date: 20080115
  Serious: No
  Sender: FDA-Public Use
  Company Number: 242585

PATIENT
  Age: 77 Year
  Sex: Female

DRUGS (5)
  1. LUCENTIS [Suspect]
     Indication: MACULAR DEGENERATION
     Dates: start: 20070514
  2. METHOTREXATE [Concomitant]
  3. IBUPROFEN [Concomitant]
  4. EYE CAPS (GENERIC COMPONENT(S) [Concomitant]
  5. LEVOXYL [Concomitant]

REACTIONS (2)
  - HEADACHE [None]
  - VISUAL DISTURBANCE [None]
